FAERS Safety Report 9857458 (Version 3)
Quarter: 2014Q1

REPORT INFORMATION
  Report Type: Report from Study
  Country: FR (occurrence: FR)
  Receive Date: 20140131
  Receipt Date: 20140203
  Transmission Date: 20141002
  Serious: Yes (Hospitalization, Other)
  Sender: FDA-Public Use
  Company Number: FR-ROCHE-1164735

PATIENT
  Age: 74 Year
  Sex: Female

DRUGS (17)
  1. RITUXIMAB [Suspect]
     Indication: RHEUMATOID ARTHRITIS
     Dosage: DAY 1
     Route: 041
     Dates: start: 20070803
  2. RITUXIMAB [Suspect]
     Dosage: DAY 15
     Route: 041
     Dates: start: 20070817
  3. RITUXIMAB [Suspect]
     Dosage: SINGLE INFUSION
     Route: 041
     Dates: start: 20080321
  4. RITUXIMAB [Suspect]
     Dosage: DAY 1
     Route: 041
     Dates: start: 20080919
  5. RITUXIMAB [Suspect]
     Dosage: DAY 15
     Route: 041
     Dates: start: 20081003
  6. RITUXIMAB [Suspect]
     Dosage: SINGLE INFUSION
     Route: 041
     Dates: start: 20090416
  7. RITUXIMAB [Suspect]
     Dosage: DAY 1
     Route: 041
     Dates: start: 20091103
  8. RITUXIMAB [Suspect]
     Dosage: DAY 15
     Route: 041
     Dates: start: 20091117
  9. RITUXIMAB [Suspect]
     Dosage: DAY 1
     Route: 041
     Dates: start: 20100702
  10. RITUXIMAB [Suspect]
     Dosage: DAY 15
     Route: 041
     Dates: start: 20100716
  11. RITUXIMAB [Suspect]
     Dosage: DAY 1
     Route: 041
     Dates: start: 20110119
  12. RITUXIMAB [Suspect]
     Dosage: DAY 15
     Route: 041
     Dates: start: 201102
  13. RITUXIMAB [Suspect]
     Dosage: SINGLE INFUSION
     Route: 041
     Dates: start: 20110831
  14. CORTANCYL [Concomitant]
     Route: 065
  15. CORTANCYL [Concomitant]
     Route: 065
  16. CORTANCYL [Concomitant]
     Route: 065
  17. LEFLUNOMIDE [Concomitant]
     Route: 065
     Dates: start: 20110714

REACTIONS (21)
  - Chest pain [Recovered/Resolved]
  - Lung infection [Recovering/Resolving]
  - Lung infection [Unknown]
  - Feeling hot [Unknown]
  - Dizziness [Not Recovered/Not Resolved]
  - Pharyngitis [Recovered/Resolved]
  - Malaise [Unknown]
  - Bronchitis [Recovered/Resolved]
  - Fibromyalgia [Recovered/Resolved]
  - Bronchitis [Unknown]
  - Haematuria [Unknown]
  - Pyrexia [Recovered/Resolved]
  - Gastroenteritis [Recovered/Resolved]
  - Actinic keratosis [Unknown]
  - Melanocytic naevus [Unknown]
  - Hot flush [Unknown]
  - Paraesthesia [Unknown]
  - Adverse drug reaction [Unknown]
  - Arrhythmia [Unknown]
  - Atrial fibrillation [Unknown]
  - Helicobacter infection [Unknown]
